FAERS Safety Report 9526379 (Version 1)
Quarter: 2013Q3

REPORT INFORMATION
  Report Type: Spontaneous
  Country: US (occurrence: US)
  Receive Date: 20130916
  Receipt Date: 20130916
  Transmission Date: 20140515
  Serious: Yes (Hospitalization)
  Sender: FDA-Public Use
  Company Number: US-ELI_LILLY_AND_COMPANY-US201309003587

PATIENT
  Sex: Male
  Weight: 100.68 kg

DRUGS (5)
  1. HUMALOG LISPRO [Suspect]
     Indication: DIABETES MELLITUS
     Dosage: 100 U, QID
     Dates: end: 201308
  2. HUMALOG LISPRO [Suspect]
     Dosage: 100 U, QID
     Dates: start: 201308
  3. LANTUS [Suspect]
     Indication: DIABETES MELLITUS
     Dosage: UNK, BID
     Dates: end: 201308
  4. REVATIO [Suspect]
     Indication: CARDIAC DISORDER
     Dosage: UNK, TID
     Dates: end: 201308
  5. REVATIO [Suspect]
     Dosage: UNK, TID
     Dates: start: 201308

REACTIONS (2)
  - Hypoglycaemic coma [Recovered/Resolved]
  - Extra dose administered [Unknown]
